FAERS Safety Report 7735594-1 (Version None)
Quarter: 2011Q3

REPORT INFORMATION
  Report Type: 
  Country: None (occurrence: None)
  Receive Date: 20110907
  Receipt Date: 20110902
  Transmission Date: 20111222
  Serious: Yes (Life-Threatening)
  Sender: FDA-Public Use
  Company Number: FR-GILEAD-2011-0043532

PATIENT
  Age: 47 Year
  Sex: Female

DRUGS (5)
  1. ZIAGEN [Concomitant]
     Dates: end: 20100226
  2. TRUVADA [Suspect]
     Indication: HIV INFECTION
     Route: 048
     Dates: start: 20100226, end: 20100329
  3. ZOLPIDEM [Concomitant]
     Dates: start: 20100315
  4. VIRAMUNE [Concomitant]
  5. VIDEX [Concomitant]
     Dates: end: 20100226

REACTIONS (1)
  - SUICIDE ATTEMPT [None]
